FAERS Safety Report 24033809 (Version 1)
Quarter: 2024Q3

REPORT INFORMATION
  Report Type: Spontaneous
  Country: US (occurrence: US)
  Receive Date: 20240701
  Receipt Date: 20240701
  Transmission Date: 20241016
  Serious: Yes (Hospitalization, Other)
  Sender: HIKMA
  Company Number: US-HIKMA PHARMACEUTICALS-US-H14001-24-05615

PATIENT
  Age: 41 Year
  Sex: Male

DRUGS (5)
  1. BRENTUXIMAB VEDOTIN [Suspect]
     Active Substance: BRENTUXIMAB VEDOTIN
     Indication: Enteropathy-associated T-cell lymphoma
     Dosage: 125.5 MILLIGRAM, (1.8 MG/KG), CYCLIC (C1D1)
     Route: 042
  2. CYCLOPHOSPHAMIDE [Suspect]
     Active Substance: CYCLOPHOSPHAMIDE
     Indication: Enteropathy-associated T-cell lymphoma
     Dosage: 1360 MILLIGRAM (750 MG/M2), CYCLIC (C1D1)
     Route: 042
     Dates: start: 20240416, end: 20240416
  3. DOXORUBICIN [Suspect]
     Active Substance: DOXORUBICIN
     Indication: Enteropathy-associated T-cell lymphoma
     Dosage: 125.5 MILLIGRAM (50 MG/M2) CYCLIC (C1D1)
     Route: 042
     Dates: start: 20240416, end: 20240416
  4. ETOPOSIDE [Suspect]
     Active Substance: ETOPOSIDE
     Indication: Enteropathy-associated T-cell lymphoma
     Dosage: 184 MILLIGRAM, (100 MG/M2), CYCLIC (C1D1)
     Route: 042
     Dates: start: 20240416, end: 20240416
  5. PREDNISONE [Suspect]
     Active Substance: PREDNISONE
     Indication: Enteropathy-associated T-cell lymphoma
     Dosage: 100 MILLIGRAM, CYCLIC (C1D1)
     Route: 048
     Dates: start: 20240416, end: 20240416

REACTIONS (5)
  - Pyrexia [Recovered/Resolved]
  - Abdominal pain [Not Recovered/Not Resolved]
  - Constipation [Not Recovered/Not Resolved]
  - Nausea [Not Recovered/Not Resolved]
  - Vomiting [Recovered/Resolved]

NARRATIVE: CASE EVENT DATE: 20240417
